FAERS Safety Report 5764881-1 (Version None)
Quarter: 2008Q2

REPORT INFORMATION
  Report Type: 
  Country: None (occurrence: None)
  Receive Date: 20080611
  Receipt Date: 20080606
  Transmission Date: 20081010
  Serious: Yes (Other)
  Sender: FDA-Public Use
  Company Number: FR-AVENTIS-200812634EU

PATIENT
  Age: 85 Year
  Sex: Male

DRUGS (10)
  1. LOVENOX [Suspect]
     Indication: PULMONARY EMBOLISM
     Route: 058
     Dates: start: 20080403
  2. COUMADIN [Suspect]
     Indication: PULMONARY EMBOLISM
     Route: 048
     Dates: start: 20080403, end: 20080502
  3. COUMADIN [Suspect]
     Route: 048
     Dates: start: 20080503
  4. ROXITHROMYCINE [Suspect]
     Indication: BRONCHITIS
     Route: 048
     Dates: start: 20080428, end: 20080502
  5. OMEPRAZOLE [Concomitant]
     Indication: PROPHYLAXIS
     Route: 048
     Dates: start: 20080428, end: 20080511
  6. BRONCHOKOD [Concomitant]
     Route: 048
     Dates: start: 20080425, end: 20080430
  7. LASILIX                            /00032601/ [Concomitant]
     Indication: CARDIAC FAILURE
     Route: 048
     Dates: start: 20070701
  8. CARDENSIEL [Concomitant]
     Indication: CARDIAC FAILURE
     Route: 048
     Dates: start: 20080403
  9. KETODERM                           /00532501/ [Concomitant]
     Dosage: DOSE: UNK
     Route: 003
     Dates: start: 20080408, end: 20080409
  10. INIPOMP                            /01263201/ [Concomitant]
     Route: 048
     Dates: start: 20080408, end: 20080421

REACTIONS (4)
  - DRUG INTERACTION [None]
  - HAEMATURIA [None]
  - INTERNATIONAL NORMALISED RATIO INCREASED [None]
  - OVERDOSE [None]
